FAERS Safety Report 8356104-4 (Version None)
Quarter: 2012Q2

REPORT INFORMATION
  Report Type: 
  Country: None (occurrence: None)
  Receive Date: 20120514
  Receipt Date: 20120507
  Transmission Date: 20120825
  Serious: Yes (Hospitalization)
  Sender: FDA-Public Use
  Company Number: US-AMGEN-USASP2011022747

PATIENT
  Age: 85 Year
  Sex: Male

DRUGS (3)
  1. PLAQUENIL [Concomitant]
     Dosage: 200 MG, QD
     Dates: start: 20020401
  2. METHOTREXATE [Concomitant]
     Dosage: 100 MG, QWK
     Dates: start: 20020401
  3. ENBREL [Suspect]
     Indication: RHEUMATOID ARTHRITIS
     Dosage: 50 MG, QWK
     Dates: start: 20020401

REACTIONS (5)
  - RHEUMATOID ARTHRITIS [None]
  - INJECTION SITE HAEMORRHAGE [None]
  - BONE DEFORMITY [None]
  - RED BLOOD CELL SEDIMENTATION RATE ABNORMAL [None]
  - ARTHROPATHY [None]
